FAERS Safety Report 9215196 (Version 1)
Quarter: 2013Q2

REPORT INFORMATION
  Report Type: Spontaneous
  Country: US (occurrence: US)
  Receive Date: 20130405
  Receipt Date: 20130405
  Transmission Date: 20140414
  Serious: No
  Sender: FDA-Public Use
  Company Number: US-BAYER-2013-040637

PATIENT
  Age: 52 Year
  Sex: Male
  Weight: 77.1 kg

DRUGS (2)
  1. ALEVE CAPLET [Suspect]
     Dosage: 1 DF, ONCE
     Route: 048
     Dates: start: 2012, end: 2012
  2. ALEVE CAPLET [Suspect]
     Dosage: 1 DF, ONCE
     Route: 048
     Dates: start: 20130322, end: 20130322

REACTIONS (6)
  - Pruritus genital [None]
  - Penile swelling [None]
  - Scab [None]
  - Pruritus genital [Not Recovered/Not Resolved]
  - Penile swelling [Not Recovered/Not Resolved]
  - Scab [Not Recovered/Not Resolved]
